FAERS Safety Report 6655681-9 (Version None)
Quarter: 2010Q1

REPORT INFORMATION
  Report Type: 
  Country: None (occurrence: None)
  Receive Date: 20100326
  Receipt Date: 20100326
  Transmission Date: 20100710
  Serious: No
  Sender: FDA-Public Use
  Company Number: None

PATIENT

DRUGS (6)
  1. SEROQUEL [Suspect]
  2. GEODON [Suspect]
     Dates: start: 20091101
  3. ABILIFY [Suspect]
     Dates: start: 20100311
  4. XAPREXA [Suspect]
     Dates: start: 20100311
  5. RISPERIDONE [Suspect]
     Dates: start: 20100311
  6. SEROQUEL [Suspect]
     Dates: start: 20100311

REACTIONS (11)
  - ATAXIA [None]
  - DISTURBANCE IN ATTENTION [None]
  - DYSPNOEA [None]
  - FEELINGS OF WORTHLESSNESS [None]
  - INCREASED APPETITE [None]
  - MENTAL IMPAIRMENT [None]
  - OXYGEN SATURATION DECREASED [None]
  - PAIN [None]
  - PALPITATIONS [None]
  - SELF-INJURIOUS IDEATION [None]
  - SOMNOLENCE [None]
